FAERS Safety Report 22628688 (Version 1)
Quarter: 2023Q2

REPORT INFORMATION
  Report Type: Spontaneous
  Country: US (occurrence: None)
  Receive Date: 20230621
  Receipt Date: 20230621
  Transmission Date: 20230721
  Serious: No
  Sender: FDA-Public Use
  Company Number: None

PATIENT
  Age: 61 Year
  Sex: Male

DRUGS (1)
  1. REPATHA [Suspect]
     Active Substance: EVOLOCUMAB

REACTIONS (5)
  - Injection site pain [None]
  - Wrong technique in product usage process [None]
  - Incorrect route of product administration [None]
  - Tendon injury [None]
  - Muscle injury [None]

NARRATIVE: CASE EVENT DATE: 20230621
